FAERS Safety Report 7469946-4 (Version None)
Quarter: 2011Q2

REPORT INFORMATION
  Report Type: 
  Country: None (occurrence: None)
  Receive Date: 20110510
  Receipt Date: 20110503
  Transmission Date: 20111010
  Serious: Yes (Other)
  Sender: FDA-Public Use
  Company Number: US-PFIZER INC-2011073388

PATIENT
  Sex: Male
  Weight: 73 kg

DRUGS (3)
  1. PANTOPRAZOLE [Concomitant]
     Dosage: UNK
  2. CHANTIX [Suspect]
     Dosage: 1 MG, 2X/DAY
     Route: 048
     Dates: start: 20110301
  3. CHANTIX [Suspect]
     Indication: SMOKING CESSATION THERAPY
     Dosage: 0.5 MG, 1X/DAY
     Route: 048
     Dates: start: 20110310, end: 20110301

REACTIONS (8)
  - AGITATION [None]
  - IRRITABILITY [None]
  - MENTAL DISORDER [None]
  - ANXIETY [None]
  - EMOTIONAL DISORDER [None]
  - WITHDRAWAL SYNDROME [None]
  - CHOKING [None]
  - ANGER [None]
